FAERS Safety Report 5280839-3 (Version None)
Quarter: 2007Q1

REPORT INFORMATION
  Report Type: 
  Country: None (occurrence: None)
  Receive Date: 20070329
  Receipt Date: 20070328
  Transmission Date: 20070707
  Serious: Yes (Death)
  Sender: FDA-Public Use
  Company Number: US-BRISTOL-MYERS SQUIBB COMPANY-13504394

PATIENT
  Age: 29 Year
  Sex: Male
  Weight: 98 kg

DRUGS (9)
  1. CISPLATIN [Suspect]
     Indication: GERM CELL CANCER
     Dates: start: 20000528
  2. BLENOXANE [Suspect]
     Indication: GERM CELL CANCER
     Dates: start: 20000528
  3. ETOPOPHOS [Suspect]
     Indication: GERM CELL CANCER
     Dates: start: 20000528
  4. NEUPOGEN [Suspect]
     Dates: start: 20000610, end: 20000614
  5. TAGAMET [Concomitant]
     Route: 042
  6. DEXAMETHASONE [Concomitant]
     Route: 042
  7. DIPHENHYDRAMINE HCL [Concomitant]
     Route: 042
  8. LORAZEPAM [Concomitant]
  9. SALINE [Concomitant]

REACTIONS (1)
  - PULMONARY EMBOLISM [None]
